FAERS Safety Report 15661577 (Version 1)
Quarter: 2018Q4

REPORT INFORMATION
  Report Type: Spontaneous
  Country: AU (occurrence: AU)
  Receive Date: 20181127
  Receipt Date: 20181127
  Transmission Date: 20190205
  Serious: Yes (Other)
  Sender: FDA-Public Use
  Company Number: AU-ASTRAZENECA-2018SF53841

PATIENT
  Age: 80 Year
  Sex: Female

DRUGS (1)
  1. DURVALUMAB. [Suspect]
     Active Substance: DURVALUMAB
     Indication: NON-SMALL CELL LUNG CANCER STAGE IV
     Route: 042

REACTIONS (6)
  - Metastases to lymph nodes [Unknown]
  - Hypersomnia [Unknown]
  - Malaise [Unknown]
  - Fatigue [Unknown]
  - Lethargy [Unknown]
  - Dyspnoea [Unknown]
